FAERS Safety Report 23432086 (Version 1)
Quarter: 2024Q1

REPORT INFORMATION
  Report Type: Spontaneous
  Country: US (occurrence: None)
  Receive Date: 20240122
  Receipt Date: 20240122
  Transmission Date: 20240410
  Serious: Yes (Hospitalization)
  Sender: FDA-Public Use
  Company Number: None

PATIENT
  Age: 41 Year
  Sex: Female
  Weight: 45 kg

DRUGS (2)
  1. LEVOFLOXACIN [Suspect]
     Active Substance: LEVOFLOXACIN
     Indication: Pneumonia
     Dosage: OTHER QUANTITY : 7 TABLET(S);?
     Route: 048
     Dates: start: 20240117, end: 20240120
  2. METHIMAZOLE [Concomitant]
     Active Substance: METHIMAZOLE

REACTIONS (5)
  - Nausea [None]
  - Headache [None]
  - Pain in extremity [None]
  - Burning sensation [None]
  - Dysstasia [None]

NARRATIVE: CASE EVENT DATE: 20240118
